FAERS Safety Report 7992144-2 (Version None)
Quarter: 2011Q4

REPORT INFORMATION
  Report Type: 
  Country: None (occurrence: None)
  Receive Date: 20111219
  Receipt Date: 20110125
  Transmission Date: 20120403
  Serious: No
  Sender: FDA-Public Use
  Company Number: US-ASTRAZENECA-2011SE04651

PATIENT
  Sex: Female

DRUGS (3)
  1. CRESTOR [Suspect]
     Indication: BLOOD CHOLESTEROL INCREASED
     Route: 048
     Dates: start: 20100101, end: 20110111
  2. CRESTOR [Suspect]
     Route: 048
     Dates: start: 20110111, end: 20110125
  3. SYNTHROID [Suspect]

REACTIONS (3)
  - WRONG DRUG ADMINISTERED [None]
  - GASTROENTERITIS VIRAL [None]
  - INCORRECT DOSE ADMINISTERED [None]
